FAERS Safety Report 23682855 (Version 1)
Quarter: 2024Q1

REPORT INFORMATION
  Report Type: Report from Study
  Country: US (occurrence: US)
  Receive Date: 20240328
  Receipt Date: 20240328
  Transmission Date: 20240410
  Serious: Yes (Hospitalization)
  Sender: FDA-Public Use
  Company Number: US-RECORDATI-2023004484

PATIENT

DRUGS (2)
  1. ISTURISA [Suspect]
     Active Substance: OSILODROSTAT PHOSPHATE
     Indication: Product used for unknown indication
     Dosage: 8 MILLIGRAM, BID
     Route: 048
     Dates: start: 20201021, end: 202307
  2. ISTURISA [Suspect]
     Active Substance: OSILODROSTAT PHOSPHATE
     Dosage: UNK
     Route: 048
     Dates: start: 2023

REACTIONS (1)
  - Brain tumour operation [Recovered/Resolved with Sequelae]

NARRATIVE: CASE EVENT DATE: 20230705
